FAERS Safety Report 21757080 (Version 1)
Quarter: 2022Q4

REPORT INFORMATION
  Report Type: Report from Study
  Country: HU (occurrence: HU)
  Receive Date: 20221220
  Receipt Date: 20221220
  Transmission Date: 20230113
  Serious: Yes (Other)
  Sender: FDA-Public Use
  Company Number: HU-ABBVIE-4229638

PATIENT
  Age: 66 Year
  Sex: Male

DRUGS (5)
  1. CARBIDOPA\LEVODOPA [Suspect]
     Active Substance: CARBIDOPA\LEVODOPA
     Indication: Parkinson^s disease
     Dosage: MORNING DOSE: 8.0 ML; CONTINUOUS DOSE: 2.5 ML/HOUR; EXTRA DOSE: 1.0 ML
     Route: 050
     Dates: start: 20221109
  2. CARBIDOPA\LEVODOPA [Suspect]
     Active Substance: CARBIDOPA\LEVODOPA
  3. FAXIPROL [Concomitant]
     Indication: Sleep disorder
     Dosage: STRENGTH- 75 MILLIGRAM   1 TABLET IN THE EVENING
     Dates: start: 2021
  4. ELIQUIS [Concomitant]
     Active Substance: APIXABAN
     Indication: Prophylaxis
     Dosage: 5 MILLIGRAM   STRENGTH - 2.5 MG
     Route: 048
     Dates: start: 2021
  5. PANTOPRAZOLE [Concomitant]
     Active Substance: PANTOPRAZOLE
     Indication: Prophylaxis
     Dosage: 40 MILLIGRAM    STRENGTH - 40 MG
     Route: 048

REACTIONS (14)
  - Loss of consciousness [Recovered/Resolved]
  - Dysphagia [Recovered/Resolved]
  - Chest injury [Unknown]
  - Limb injury [Unknown]
  - Fall [Recovered/Resolved]
  - Papule [Unknown]
  - Joint injury [Unknown]
  - Loss of consciousness [Recovered/Resolved]
  - Arthralgia [Recovering/Resolving]
  - Gait disturbance [Not Recovered/Not Resolved]
  - Dysphagia [Recovered/Resolved]
  - Head injury [Recovering/Resolving]
  - Pain in extremity [Recovering/Resolving]
  - Chest pain [Recovering/Resolving]

NARRATIVE: CASE EVENT DATE: 20221124
